FAERS Safety Report 10213750 (Version 1)
Quarter: 2014Q2

REPORT INFORMATION
  Report Type: Spontaneous
  Country: JP (occurrence: JP)
  Receive Date: 20140603
  Receipt Date: 20140603
  Transmission Date: 20141212
  Serious: Yes (Other)
  Sender: FDA-Public Use
  Company Number: JP-ASTELLAS-2014JP008200AA

PATIENT
  Age: 42 Year
  Sex: Male

DRUGS (5)
  1. PROGRAF [Suspect]
     Indication: KIDNEY TRANSPLANT REJECTION
     Route: 065
  2. MYCOPHENOLATE MOFETIL [Suspect]
     Indication: KIDNEY TRANSPLANT REJECTION
     Route: 065
  3. PREDNISOLONE [Suspect]
     Indication: KIDNEY TRANSPLANT REJECTION
     Route: 065
  4. SULFAMETHOXAZOLE AND TRIMETHOPRIM [Concomitant]
     Indication: PROPHYLAXIS
     Dosage: UNK UNK, UNKNOWN FREQ.
     Route: 048
  5. ACICLOVIR [Concomitant]
     Indication: PROPHYLAXIS
     Dosage: UNK, UNKNOWN FREQ.
     Route: 048

REACTIONS (2)
  - White blood cell count decreased [Unknown]
  - Neutrophil count decreased [Unknown]
